FAERS Safety Report 7463299-3 (Version None)
Quarter: 2011Q2

REPORT INFORMATION
  Report Type: 
  Country: None (occurrence: None)
  Receive Date: 20110506
  Receipt Date: 20110421
  Transmission Date: 20111010
  Serious: Yes (Hospitalization)
  Sender: FDA-Public Use
  Company Number: B0717349A

PATIENT
  Sex: Male

DRUGS (4)
  1. ATARAX [Suspect]
     Dosage: 25MG FOUR TIMES PER DAY
     Route: 048
     Dates: start: 20110212
  2. DEPAKOTE [Suspect]
     Indication: HYPOMANIA
     Dosage: 250MG TWICE PER DAY
     Route: 048
     Dates: start: 20110212
  3. RISPERIDONE [Suspect]
     Indication: HYPOMANIA
     Dosage: 2MG TWICE PER DAY
     Route: 048
     Dates: start: 20110212, end: 20110301
  4. NICOTINE [Suspect]
     Indication: SMOKING CESSATION THERAPY
     Dosage: 1PAT PER DAY
     Route: 062
     Dates: start: 20110215

REACTIONS (3)
  - GENERALISED OEDEMA [None]
  - URTICARIA [None]
  - PRURITUS GENERALISED [None]
